FAERS Safety Report 15843170 (Version 3)
Quarter: 2019Q3

REPORT INFORMATION
  Report Type: Spontaneous
  Country: PL (occurrence: PL)
  Receive Date: 20190118
  Receipt Date: 20190709
  Transmission Date: 20191004
  Serious: Yes (Hospitalization, Other)
  Sender: FDA-Public Use
  Company Number: PL-TEVA-2019-PL-999387

PATIENT
  Sex: Male

DRUGS (14)
  1. ANAFRANIL [Suspect]
     Active Substance: CLOMIPRAMINE HYDROCHLORIDE
     Indication: OBSESSIVE-COMPULSIVE DISORDER
     Dosage: 37.5 MILLIGRAM DAILY; UNIT DOSE = 0.5 DOSAGE FORM
     Route: 065
  2. ANAFRANIL [Interacting]
     Active Substance: CLOMIPRAMINE HYDROCHLORIDE
     Dosage: 75 MILLIGRAM DAILY;
     Dates: start: 201509
  3. SYMLA [Concomitant]
     Dosage: 50 MILLIGRAM DAILY;
     Route: 065
     Dates: start: 201511
  4. ANAFRANIL [Interacting]
     Active Substance: CLOMIPRAMINE HYDROCHLORIDE
     Dosage: 225 MILLIGRAM DAILY;
     Route: 065
     Dates: start: 201601, end: 2016
  5. KWETAPLEX [Concomitant]
     Active Substance: QUETIAPINE FUMARATE
     Route: 065
     Dates: start: 201404
  6. BISOCARD [Concomitant]
     Active Substance: BISOPROLOL
     Indication: HYPERTENSION
  7. VALPROIC ACID. [Concomitant]
     Active Substance: VALPROIC ACID
  8. VIVACE [Concomitant]
     Indication: HYPERTENSION
  9. SERTRALINE [Concomitant]
     Active Substance: SERTRALINE HYDROCHLORIDE
     Route: 065
  10. DEPAKINE CHRONO [Concomitant]
     Active Substance: VALPROATE SODIUM
     Dosage: 500 MILLIGRAM DAILY;
     Route: 065
     Dates: start: 201509
  11. ANAFRANIL [Interacting]
     Active Substance: CLOMIPRAMINE HYDROCHLORIDE
     Dosage: 150 MILLIGRAM DAILY;
     Route: 065
     Dates: start: 201506
  12. HYDROXYZINE VP [Concomitant]
     Dosage: 50 MILLIGRAM DAILY;
     Dates: start: 201509
  13. DEPAKINE CHRONO [Concomitant]
     Active Substance: VALPROATE SODIUM
     Dosage: 300 MILLIGRAM DAILY;
     Route: 065
     Dates: start: 201509
  14. FEVARIN [Concomitant]
     Active Substance: FLUVOXAMINE MALEATE
     Dosage: 50 MILLIGRAM DAILY;
     Route: 065
     Dates: start: 201601

REACTIONS (13)
  - Hypomania [Unknown]
  - Movement disorder [Not Recovered/Not Resolved]
  - Alcohol interaction [Unknown]
  - Bipolar disorder [Not Recovered/Not Resolved]
  - Self esteem decreased [Not Recovered/Not Resolved]
  - Schizoaffective disorder [Not Recovered/Not Resolved]
  - Loss of consciousness [Unknown]
  - Delusion [Not Recovered/Not Resolved]
  - Hallucination [Not Recovered/Not Resolved]
  - Mania [Not Recovered/Not Resolved]
  - Seasonal affective disorder [Not Recovered/Not Resolved]
  - Mental disorder [Not Recovered/Not Resolved]
  - Personality disorder [Not Recovered/Not Resolved]
